APPROVED DRUG PRODUCT: ATENOLOL AND CHLORTHALIDONE
Active Ingredient: ATENOLOL; CHLORTHALIDONE
Strength: 100MG;25MG
Dosage Form/Route: TABLET;ORAL
Application: A073582 | Product #001
Applicant: SUN PHARMACEUTICAL INDUSTRIES INC
Approved: Apr 29, 1993 | RLD: No | RS: No | Type: DISCN